FAERS Safety Report 4457667-1 (Version None)
Quarter: 2004Q3

REPORT INFORMATION
  Report Type: 
  Country: None (occurrence: None)
  Receive Date: 20040922
  Receipt Date: 20040907
  Transmission Date: 20050211
  Serious: Yes (Other)
  Sender: FDA-Public Use
  Company Number: 8007220

PATIENT
  Age: 23 Year
  Sex: Female
  Weight: 45.3 kg

DRUGS (3)
  1. KEPPRA [Suspect]
     Indication: EPILEPSY
     Dosage: 500 MG 2/D PO
     Route: 048
     Dates: start: 20040804, end: 20040906
  2. CLONAZEPAM [Concomitant]
  3. BROMOCRIPTINE MESYLATE [Concomitant]

REACTIONS (2)
  - DRUG HYPERSENSITIVITY [None]
  - RASH MACULO-PAPULAR [None]
